FAERS Safety Report 9471199 (Version 1)
Quarter: 2013Q3

REPORT INFORMATION
  Report Type: Report from Study
  Country: None (occurrence: US)
  Receive Date: 20130822
  Receipt Date: 20130822
  Transmission Date: 20140515
  Serious: Yes (Hospitalization)
  Sender: FDA-Public Use
  Company Number: US-EISAI INC-E7389-04124-CLI-US

PATIENT
  Age: 71 Year
  Sex: Female
  Weight: 54 kg

DRUGS (6)
  1. HALAVEN [Suspect]
     Indication: BREAST CANCER METASTATIC
     Dates: start: 20130610
  2. PLX3397 [Suspect]
     Indication: BREAST CANCER METASTATIC
     Route: 048
     Dates: start: 20130610
  3. MULTIVITAMINS [Concomitant]
  4. CHOLECALCIFEROL [Concomitant]
  5. VITAMIN D3 [Concomitant]
  6. TURMERIC [Concomitant]

REACTIONS (1)
  - Myocardial infarction [Unknown]
